FAERS Safety Report 6366881-X (Version None)
Quarter: 2009Q3

REPORT INFORMATION
  Report Type: 
  Country: None (occurrence: None)
  Receive Date: 20090821
  Receipt Date: 20090720
  Transmission Date: 20100115
  Serious: No
  Sender: FDA-Public Use
  Company Number: 8049261

PATIENT
  Age: 59 Year
  Sex: Female
  Weight: 99.3 kg

DRUGS (13)
  1. CIMZIA [Suspect]
     Indication: CROHN'S DISEASE
     Dosage: 400 MG SC
     Route: 058
     Dates: start: 20090707
  2. CIMZIA [Suspect]
     Indication: RHEUMATOID ARTHRITIS
     Dosage: 400 MG SC
     Route: 058
     Dates: start: 20090707
  3. MELOXICAM [Concomitant]
  4. PREDNISONE [Concomitant]
  5. TRIAMETERENE [Concomitant]
  6. WELLBUTRIN [Concomitant]
  7. OMEPRAZOLE [Concomitant]
  8. ESTRADIOL [Concomitant]
  9. SIMVASTATIN [Concomitant]
  10. FISH OIL [Concomitant]
  11. VITAMIN B COMPLEX CAP [Concomitant]
  12. ASCORBIC ACID [Concomitant]
  13. MULTI-VITAMIN [Concomitant]

REACTIONS (4)
  - RASH [None]
  - SKIN DISCOLOURATION [None]
  - SKIN WARM [None]
  - SWELLING [None]
